FAERS Safety Report 19514509 (Version 3)
Quarter: 2021Q4

REPORT INFORMATION
  Report Type: Spontaneous
  Country: US (occurrence: US)
  Receive Date: 20210710
  Receipt Date: 20211005
  Transmission Date: 20220303
  Serious: No
  Sender: FDA-Public Use
  Company Number: 2021A557947

PATIENT
  Age: 66 Year
  Sex: Female
  Weight: 132 kg

DRUGS (1)
  1. SYMBICORT [Suspect]
     Active Substance: BUDESONIDE\FORMOTEROL FUMARATE DIHYDRATE
     Indication: Dyspnoea
     Dosage: 160/4.5 MCG, FOUR TIMES A DAY
     Route: 055
     Dates: start: 20200101

REACTIONS (2)
  - Dyspnoea [Not Recovered/Not Resolved]
  - Malaise [Unknown]
